FAERS Safety Report 7482325-9 (Version None)
Quarter: 2011Q2

REPORT INFORMATION
  Report Type: 
  Country: None (occurrence: None)
  Receive Date: 20110516
  Receipt Date: 20110510
  Transmission Date: 20111010
  Serious: No
  Sender: FDA-Public Use
  Company Number: US-PFIZER INC-2011100198

PATIENT
  Sex: Female

DRUGS (2)
  1. NORVASC [Suspect]
     Dosage: 2.5 MG
  2. BENICAR [Suspect]
     Dosage: UNK

REACTIONS (2)
  - FATIGUE [None]
  - CONFUSIONAL STATE [None]
